FAERS Safety Report 21860887 (Version 7)
Quarter: 2023Q2

REPORT INFORMATION
  Report Type: Spontaneous
  Country: US (occurrence: US)
  Receive Date: 20230113
  Receipt Date: 20230525
  Transmission Date: 20230722
  Serious: Yes (Death)
  Sender: FDA-Public Use
  Company Number: US-PFIZER INC-PV202300007315

PATIENT
  Age: 16 Month
  Sex: Female
  Weight: 36.281 kg

DRUGS (7)
  1. CARBOPLATIN [Suspect]
     Active Substance: CARBOPLATIN
     Indication: Osteosarcoma
     Dosage: UNK
     Dates: start: 20220207
  2. CARBOPLATIN [Suspect]
     Active Substance: CARBOPLATIN
     Dosage: 300 MG X6
     Dates: start: 20230117
  3. CARBOPLATIN [Suspect]
     Active Substance: CARBOPLATIN
     Dosage: 320 MG FREQUENCY ONCE
     Route: 042
     Dates: start: 20230117, end: 202302
  4. ZOFRAN [Concomitant]
     Active Substance: ONDANSETRON HYDROCHLORIDE
     Dosage: UNK
  5. TRAZODONE [Concomitant]
     Active Substance: TRAZODONE HYDROCHLORIDE
     Dosage: UNK
  6. CARPROFEN [Concomitant]
     Active Substance: CARPROFEN
     Dosage: UNK
  7. OXYCODONE [Concomitant]
     Active Substance: OXYCODONE
     Dosage: UNK

REACTIONS (13)
  - Death [Fatal]
  - Incision site oedema [Unknown]
  - Scar [Unknown]
  - Nausea [Unknown]
  - Infantile vomiting [Recovered/Resolved]
  - Diarrhoea [Unknown]
  - Lethargy [Unknown]
  - Decreased appetite [Recovering/Resolving]
  - Faeces soft [Recovering/Resolving]
  - Bone marrow oedema [Unknown]
  - Weight decreased [Unknown]
  - Neoplasm recurrence [Unknown]
  - Off label use [Unknown]

NARRATIVE: CASE EVENT DATE: 20220207
